FAERS Safety Report 5473060-7 (Version None)
Quarter: 2007Q4

REPORT INFORMATION
  Report Type: 
  Country: None (occurrence: None)
  Receive Date: 20071001
  Receipt Date: 20070404
  Transmission Date: 20080405
  Serious: No
  Sender: FDA-Public Use
  Company Number: US-ASTRAZENECA-2007UW06670

PATIENT
  Age: 51 Year
  Sex: Female
  Weight: 49.4 kg

DRUGS (2)
  1. ARIMIDEX [Suspect]
     Indication: BREAST CANCER STAGE III
     Route: 048
  2. ASPIRIN [Concomitant]

REACTIONS (6)
  - ANXIETY [None]
  - DRY MOUTH [None]
  - FATIGUE [None]
  - HEADACHE [None]
  - IRRITABILITY [None]
  - VULVOVAGINAL DRYNESS [None]
